FAERS Safety Report 8459499-6 (Version None)
Quarter: 2012Q2

REPORT INFORMATION
  Report Type: 
  Country: None (occurrence: None)
  Receive Date: 20120622
  Receipt Date: 20120612
  Transmission Date: 20120825
  Serious: Yes (Hospitalization)
  Sender: FDA-Public Use
  Company Number: US-ELI_LILLY_AND_COMPANY-US201205002701

PATIENT
  Sex: Female

DRUGS (8)
  1. CALCIUM + VITAMIN D [Concomitant]
     Indication: PRODUCT USED FOR UNKNOWN INDICATION
  2. FORTEO [Suspect]
     Indication: OSTEOPOROSIS
     Dosage: 20 MCG, QD
     Dates: start: 20120323
  3. ASPIRIN [Concomitant]
     Dosage: 325 MG, QD
  4. EFFIENT [Suspect]
     Dosage: 10 MG, QD
  5. LISINOPRIL [Concomitant]
     Dosage: 10 MG, QD
  6. ATORVASTATIN CALCIUM [Concomitant]
     Dosage: 10 MG, QD
  7. VITAMIN TAB [Concomitant]
     Dosage: UNK UNK, QD
  8. ASCORBIC ACID [Concomitant]
     Indication: PRODUCT USED FOR UNKNOWN INDICATION

REACTIONS (3)
  - BACK PAIN [None]
  - BACK INJURY [None]
  - CORONARY ARTERIAL STENT INSERTION [None]
